FAERS Safety Report 5879769-5 (Version None)
Quarter: 2008Q3

REPORT INFORMATION
  Report Type: 
  Country: None (occurrence: None)
  Receive Date: 20080911
  Receipt Date: 20080911
  Transmission Date: 20090109
  Serious: Yes (Other)
  Sender: FDA-Public Use
  Company Number: None

PATIENT
  Age: 39 Year
  Sex: Female
  Weight: 78.9259 kg

DRUGS (15)
  1. PERCOCET [Suspect]
     Indication: BACK INJURY
     Dosage: 7.5-325 ONE TABLET TID, PRN PO
     Route: 048
     Dates: start: 20080905, end: 20080908
  2. PERCOCET [Suspect]
     Indication: BREAKTHROUGH PAIN
     Dosage: 7.5-325 ONE TABLET TID, PRN PO
     Route: 048
     Dates: start: 20080905, end: 20080908
  3. OXYCODONE AND ACETAMINOPHEN [Suspect]
  4. LUTERA [Concomitant]
  5. EFFEXOR [Concomitant]
  6. SINA [Concomitant]
  7. AMLODIPINE [Concomitant]
  8. BENAZEPRIL HYDROCHLORIDE [Concomitant]
  9. CLONAZEPAM [Concomitant]
  10. OPANA [Concomitant]
  11. OXYDODONE/APAP [Concomitant]
  12. SYNTHROID [Concomitant]
  13. CHLORPHENIRAMINE MALEATE AND PSEUDOEPHEDRINE HCL [Concomitant]
  14. RESCON [Concomitant]
  15. CHLORPHENIRAMINE MALEATE AND PSEUDOEPHEDRINE HCL [Concomitant]

REACTIONS (2)
  - DRUG INEFFECTIVE [None]
  - THERAPEUTIC RESPONSE UNEXPECTED WITH DRUG SUBSTITUTION [None]
